FAERS Safety Report 23349421 (Version 2)
Quarter: 2024Q1

REPORT INFORMATION
  Report Type: Spontaneous
  Country: US (occurrence: US)
  Receive Date: 20231229
  Receipt Date: 20240202
  Transmission Date: 20240409
  Serious: Yes (Other)
  Sender: FDA-Public Use
  Company Number: US-002147023-NVSC2023US275809

PATIENT
  Age: 67 Year
  Sex: Male
  Weight: 89 kg

DRUGS (2)
  1. PLUVICTO [Suspect]
     Active Substance: LUTETIUM LU-177 VIPIVOTIDE TETRAXETAN
     Indication: Prostate cancer
     Dosage: UNK
     Route: 065
  2. PLUVICTO [Suspect]
     Active Substance: LUTETIUM LU-177 VIPIVOTIDE TETRAXETAN
     Dosage: UNK
     Route: 065
     Dates: start: 20230530, end: 20231114

REACTIONS (2)
  - Anaemia [Not Recovered/Not Resolved]
  - General physical health deterioration [Not Recovered/Not Resolved]

NARRATIVE: CASE EVENT DATE: 20231226
